FAERS Safety Report 14544057 (Version 3)
Quarter: 2018Q3

REPORT INFORMATION
  Report Type: Spontaneous
  Country: CA (occurrence: CA)
  Receive Date: 20180216
  Receipt Date: 20180924
  Transmission Date: 20181010
  Serious: Yes (Other)
  Sender: FDA-Public Use
  Company Number: CA-PFIZER INC-2018070537

PATIENT
  Age: 51 Year
  Sex: Female

DRUGS (10)
  1. ESOMEPRAZOLE MAGNESIUM. [Suspect]
     Active Substance: ESOMEPRAZOLE MAGNESIUM
     Dosage: UNK
  2. ENBREL [Suspect]
     Active Substance: ETANERCEPT
     Dosage: 50 MG, WEEKLY
  3. PREDNISOLONE. [Suspect]
     Active Substance: PREDNISOLONE
     Dosage: UNK
  4. SULFASALAZINE. [Concomitant]
     Active Substance: SULFASALAZINE
     Dosage: UNK
  5. PLAQUENIL /00072602/ [Concomitant]
     Active Substance: HYDROXYCHLOROQUINE DIPHOSPHATE
     Dosage: UNK
  6. WINPRED [Suspect]
     Active Substance: PREDNISONE
     Dosage: 1 MG, UNK
  7. APO?PREDNISONE [Suspect]
     Active Substance: PREDNISONE
     Dosage: UNK
  8. DIOVAN [Concomitant]
     Active Substance: VALSARTAN
     Dosage: UNK
  9. FOLIC ACID. [Concomitant]
     Active Substance: FOLIC ACID
     Dosage: UNK
  10. METHOTREXATE SODIUM. [Suspect]
     Active Substance: METHOTREXATE SODIUM
     Dosage: UNK

REACTIONS (18)
  - Anxiety [Unknown]
  - Arthritis [Unknown]
  - Joint swelling [Unknown]
  - Abdominal pain upper [Unknown]
  - Joint injury [Unknown]
  - Muscle strain [Unknown]
  - Headache [Unknown]
  - Inflammation [Unknown]
  - Paraesthesia [Unknown]
  - Arthralgia [Unknown]
  - Fall [Unknown]
  - Upper-airway cough syndrome [Unknown]
  - Drug ineffective [Unknown]
  - Pain in extremity [Unknown]
  - Pain [Unknown]
  - Rhinorrhoea [Unknown]
  - Neck pain [Unknown]
  - Nausea [Unknown]
